FAERS Safety Report 19661616 (Version 3)
Quarter: 2021Q4

REPORT INFORMATION
  Report Type: Spontaneous
  Country: US (occurrence: US)
  Receive Date: 20210805
  Receipt Date: 20211228
  Transmission Date: 20220304
  Serious: Yes (Other)
  Sender: FDA-Public Use
  Company Number: US-PFIZER INC-202100937253

PATIENT
  Age: 50 Year
  Sex: Female

DRUGS (3)
  1. XELJANZ XR [Suspect]
     Active Substance: TOFACITINIB CITRATE
     Dosage: 11 MG, 1X/DAY
     Dates: start: 20210624
  2. XELJANZ XR [Suspect]
     Active Substance: TOFACITINIB CITRATE
     Dosage: 11 MG, 1X/DAY
     Route: 048
     Dates: start: 20210628
  3. XELJANZ XR [Suspect]
     Active Substance: TOFACITINIB CITRATE
     Dosage: 11 MG, 1X/DAY
     Route: 048
     Dates: start: 20210701

REACTIONS (12)
  - Oropharyngeal pain [Unknown]
  - Cough [Unknown]
  - Rhinitis [Unknown]
  - Lacrimation increased [Unknown]
  - Drug ineffective [Unknown]
  - Sinus headache [Unknown]
  - Decreased appetite [Unknown]
  - Weight decreased [Unknown]
  - Dry eye [Unknown]
  - Eye irritation [Unknown]
  - Eye swelling [Unknown]
  - Headache [Unknown]

NARRATIVE: CASE EVENT DATE: 20210101
